FAERS Safety Report 19899443 (Version 1)
Quarter: 2021Q3

REPORT INFORMATION
  Report Type: Spontaneous
  Country: DE (occurrence: DE)
  Receive Date: 20210929
  Receipt Date: 20210929
  Transmission Date: 20211014
  Serious: Yes (Hospitalization)
  Sender: FDA-Public Use
  Company Number: DE-MYLANLABS-2021M1066583

PATIENT
  Age: 33 Year
  Sex: Male

DRUGS (5)
  1. METAMIZOL                          /06276701/ [Concomitant]
     Active Substance: METAMIZOLE
     Dosage: 500 MG, 1?1?0?0, TABLETTEN
     Route: 048
  2. RISPERIDONE. [Suspect]
     Active Substance: RISPERIDONE
     Indication: PRODUCT USED FOR UNKNOWN INDICATION
     Dosage: 2 MG, 0?0?2?0, TABLETTEN
     Route: 048
  3. QUETIAPIN [Concomitant]
     Active Substance: QUETIAPINE
     Dosage: 400 MG, 0?0?2?0, TABLETTEN
     Route: 048
  4. NALOXONE W/TILIDINE [Concomitant]
     Active Substance: NALOXONE HYDROCHLORIDE\TILIDINE HYDROCHLORIDE
     Dosage: 8|100 MG, 1?1?0?1, TABLETTEN
     Route: 048
  5. DALTEPARIN [Concomitant]
     Active Substance: DALTEPARIN
     Dosage: 5000 IE, 0?0?1?0, INJEKTIONS?/INFUSIONSL?SUNG
     Route: 058

REACTIONS (1)
  - Impaired healing [Unknown]

NARRATIVE: CASE EVENT DATE: 20200913
